FAERS Safety Report 8963322 (Version 4)
Quarter: 2013Q1

REPORT INFORMATION
  Report Type: Spontaneous
  Country: JP (occurrence: JP)
  Receive Date: 20121214
  Receipt Date: 20130111
  Transmission Date: 20140127
  Serious: Yes (Death, Other)
  Sender: FDA-Public Use
  Company Number: JP-JNJFOC-20121203367

PATIENT
  Age: 8 Decade
  Sex: Male

DRUGS (2)
  1. DUROTEP MT [Suspect]
     Indication: CANCER PAIN
     Route: 062
     Dates: start: 201211, end: 20121204
  2. DUROTEP MT [Suspect]
     Indication: CANCER PAIN
     Route: 062
     Dates: start: 20121106, end: 201211

REACTIONS (3)
  - Nasal sinus cancer [Fatal]
  - Somnolence [Unknown]
  - Inadequate analgesia [Unknown]
